FAERS Safety Report 5647176-6 (Version None)
Quarter: 2008Q1

REPORT INFORMATION
  Report Type: 
  Country: None (occurrence: None)
  Receive Date: 20080228
  Receipt Date: 20080228
  Transmission Date: 20080703
  Serious: No
  Sender: FDA-Public Use
  Company Number: None

PATIENT
  Sex: Female
  Weight: 59.8748 kg

DRUGS (2)
  1. LEVOXYL [Suspect]
     Indication: CONGENITAL HYPOTHYROIDISM
     Dosage: LEVOXYL  TUE,THUR,SAT   PO
     Route: 048
     Dates: start: 20051120, end: 20080223
  2. LEVOXYL [Suspect]
     Dosage: LEVOXYL   MON,WED,FRI,SUN  PO
     Route: 048

REACTIONS (2)
  - BLOOD THYROID STIMULATING HORMONE ABNORMAL [None]
  - HEADACHE [None]
